FAERS Safety Report 14382211 (Version 1)
Quarter: 2018Q1

REPORT INFORMATION
  Report Type: Report from Study
  Country: DE (occurrence: DE)
  Receive Date: 20180112
  Receipt Date: 20180112
  Transmission Date: 20180509
  Serious: Yes (Other)
  Sender: FDA-Public Use
  Company Number: DE-SHIRE-DE201800824

PATIENT

DRUGS (1)
  1. ADVATE [Suspect]
     Active Substance: ANTIHEMOPHILIC FACTOR, HUMAN RECOMBINANT
     Indication: PRODUCT USED FOR UNKNOWN INDICATION
     Dosage: 3X 500 IU
     Route: 065
     Dates: start: 20170718

REACTIONS (2)
  - Factor VIII inhibition [Unknown]
  - Product leakage [Unknown]

NARRATIVE: CASE EVENT DATE: 20171220
